FAERS Safety Report 6104470-2 (Version None)
Quarter: 2009Q1

REPORT INFORMATION
  Report Type: 
  Country: None (occurrence: None)
  Receive Date: 20090305
  Receipt Date: 20090302
  Transmission Date: 20090719
  Serious: Yes (Death, Hospitalization, Disabling)
  Sender: FDA-Public Use
  Company Number: FR-SANOFI-SYNTHELABO-F01200900156

PATIENT
  Sex: Male

DRUGS (9)
  1. PREVISCAN [Concomitant]
  2. ARIXTRA [Concomitant]
  3. DIFFU-K [Concomitant]
  4. LASIX [Concomitant]
  5. ZESTRIL [Concomitant]
  6. DIGOXIN [Concomitant]
  7. CAPECITABINE [Suspect]
     Dosage: 2300 MG
     Route: 048
     Dates: end: 20080221
  8. OXALIPLATIN [Suspect]
     Indication: COLORECTAL CANCER
     Dosage: 85 MG
     Route: 042
     Dates: start: 20080215, end: 20080215
  9. RADIOTHERAPY [Suspect]

REACTIONS (2)
  - PERITONITIS [None]
  - RESPIRATORY ARREST [None]
